FAERS Safety Report 12656805 (Version 1)
Quarter: 2016Q3

REPORT INFORMATION
  Report Type: Spontaneous
  Country: TR (occurrence: TR)
  Receive Date: 20160816
  Receipt Date: 20160816
  Transmission Date: 20161109
  Serious: Yes (Other)
  Sender: FDA-Public Use
  Company Number: TR-MYLANLABS-2016M1034149

PATIENT

DRUGS (3)
  1. RISPERIDONE. [Suspect]
     Active Substance: RISPERIDONE
     Indication: ACUTE PSYCHOSIS
     Dosage: INITIALLY 3MG/DAY FOR 3 WEEKS, LATER DOSE INCREASED TO 6MG/DAY
     Route: 065
  2. VALPROIC ACID. [Concomitant]
     Active Substance: VALPROIC ACID
     Indication: ACUTE PSYCHOSIS
     Dosage: 1000MG/DAY FOR 3 WEEKS
     Route: 065
  3. BUPROPION. [Suspect]
     Active Substance: BUPROPION
     Indication: SMOKING CESSATION THERAPY
     Dosage: 300MG/DAY
     Route: 065

REACTIONS (3)
  - Acute psychosis [Recovering/Resolving]
  - Condition aggravated [Recovering/Resolving]
  - Extrapyramidal disorder [Recovering/Resolving]
